FAERS Safety Report 16087144 (Version 2)
Quarter: 2019Q1

REPORT INFORMATION
  Report Type: Report from Study
  Country: None (occurrence: CA)
  Receive Date: 20190319
  Receipt Date: 20190328
  Transmission Date: 20190418
  Serious: Yes (Other)
  Sender: FDA-Public Use
  Company Number: CA-ABBVIE-18K-028-2596382-00

PATIENT
  Sex: Female

DRUGS (1)
  1. HUMIRA [Suspect]
     Active Substance: ADALIMUMAB
     Indication: CROHN^S DISEASE
     Route: 058
     Dates: start: 20180504

REACTIONS (5)
  - Stoma closure [Recovering/Resolving]
  - Hernia [Recovering/Resolving]
  - Infection [Recovering/Resolving]
  - Stoma creation [Unknown]
  - Gastrointestinal inflammation [Recovering/Resolving]

NARRATIVE: CASE EVENT DATE: 2018
